FAERS Safety Report 4577563-9 (Version None)
Quarter: 2005Q1

REPORT INFORMATION
  Report Type: 
  Country: None (occurrence: None)
  Receive Date: 20050127
  Receipt Date: 20040929
  Transmission Date: 20050727
  Serious: No
  Sender: FDA-Public Use
  Company Number: US_0410107006

PATIENT
  Age: 46 Year
  Sex: Female
  Weight: 36 kg

DRUGS (1)
  1. STRATTERA [Suspect]
     Indication: ATTENTION DEFICIT/HYPERACTIVITY DISORDER
     Dosage: 40 MG DAY
     Dates: start: 20040801, end: 20040912

REACTIONS (3)
  - FALSE POSITIVE LABORATORY RESULT [None]
  - HYPERHIDROSIS [None]
  - PALPITATIONS [None]
